FAERS Safety Report 10520470 (Version 1)
Quarter: 2014Q4

REPORT INFORMATION
  Report Type: Spontaneous
  Country: US (occurrence: US)
  Receive Date: 20141015
  Receipt Date: 20141015
  Transmission Date: 20150528
  Serious: No
  Sender: FDA-Public Use
  Company Number: US-GLAXOSMITHKLINE-US2014000271

PATIENT
  Sex: Female

DRUGS (1)
  1. ABREVA [Suspect]
     Active Substance: DOCOSANOL
     Indication: ORAL HERPES

REACTIONS (3)
  - Application site scar [Not Recovered/Not Resolved]
  - Application site erythema [Not Recovered/Not Resolved]
  - Product quality issue [Unknown]
